FAERS Safety Report 4408260-8 (Version None)
Quarter: 2004Q3

REPORT INFORMATION
  Report Type: 
  Country: None (occurrence: None)
  Receive Date: 20040722
  Receipt Date: 20040712
  Transmission Date: 20050211
  Serious: Yes (Other)
  Sender: FDA-Public Use
  Company Number: 2004222873DE

PATIENT
  Age: 40 Year
  Sex: Female

DRUGS (1)
  1. CELEBREX [Suspect]
     Indication: MENINGIOMA
     Dosage: 200 MG, BID, ORAL
     Route: 048
     Dates: start: 20040701

REACTIONS (1)
  - PAPILLOEDEMA [None]
